FAERS Safety Report 5647922-1 (Version None)
Quarter: 2008Q1

REPORT INFORMATION
  Report Type: 
  Country: None (occurrence: None)
  Receive Date: 20080303
  Receipt Date: 20080220
  Transmission Date: 20080703
  Serious: Yes (Other)
  Sender: FDA-Public Use
  Company Number: US-PFIZER INC-2008018399

PATIENT
  Sex: Female
  Weight: 58.636 kg

DRUGS (7)
  1. CHANTIX [Suspect]
     Indication: SMOKING CESSATION THERAPY
     Dates: start: 20071001, end: 20080101
  2. LAMICTAL [Concomitant]
  3. TOPAMAX [Concomitant]
  4. NEXIUM [Concomitant]
  5. VITAMINS [Concomitant]
  6. CALCIUM [Concomitant]
  7. XANAX [Concomitant]

REACTIONS (1)
  - MANIA [None]
